FAERS Safety Report 4782395-2 (Version None)
Quarter: 2005Q3

REPORT INFORMATION
  Report Type: 
  Country: None (occurrence: None)
  Receive Date: 20050914
  Receipt Date: 20050706
  Transmission Date: 20060218
  Serious: Yes (Other)
  Sender: FDA-Public Use
  Company Number: 163-20785-05070130

PATIENT

DRUGS (6)
  1. THALOMID [Suspect]
     Indication: MULTIPLE MYELOMA
     Dosage: 200-400MG, INDUCTION PHASE, DAILY STARTING ON DAY 4, ORAL;  200-400 MG MAINTENANCE PHASE, DAILY, ORA
     Route: 048
     Dates: end: 20041101
  2. THALOMID [Suspect]
     Indication: MULTIPLE MYELOMA
     Dosage: 200-400MG, INDUCTION PHASE, DAILY STARTING ON DAY 4, ORAL;  200-400 MG MAINTENANCE PHASE, DAILY, ORA
     Route: 048
     Dates: start: 20030814
  3. GENASENSE [Suspect]
     Indication: MULTIPLE MYELOMA
     Dosage: 7MG/KG/DAY INDUCTION PHASE, ON DAYS 1-7, 22-28 AND 43-49, INTRAVENOUS DRIP; 7MG/KG/DAY MAINTENANCE P
     Route: 041
     Dates: start: 20031104, end: 20041101
  4. GENASENSE [Suspect]
     Indication: MULTIPLE MYELOMA
     Dosage: 7MG/KG/DAY INDUCTION PHASE, ON DAYS 1-7, 22-28 AND 43-49, INTRAVENOUS DRIP; 7MG/KG/DAY MAINTENANCE P
     Route: 041
     Dates: start: 20030811
  5. DEXAMETHASONE [Suspect]
     Indication: MULTIPLE MYELOMA
     Dosage: 40 MG DAILY, INDUCTION PHASE, DAYS 4-7, 25-28 AND 46-49, ORAL; 20 MG DAILY, MAINTENANCE PHASE, DAYS
     Route: 048
     Dates: start: 20030814
  6. DEXAMETHASONE [Suspect]
     Indication: MULTIPLE MYELOMA
     Dosage: 40 MG DAILY, INDUCTION PHASE, DAYS 4-7, 25-28 AND 46-49, ORAL; 20 MG DAILY, MAINTENANCE PHASE, DAYS
     Route: 048
     Dates: start: 20031107

REACTIONS (2)
  - CONSTIPATION [None]
  - HYPONATRAEMIA [None]
